FAERS Safety Report 6219464-6 (Version None)
Quarter: 2009Q2

REPORT INFORMATION
  Report Type: 
  Country: None (occurrence: None)
  Receive Date: 20090609
  Receipt Date: 20090529
  Transmission Date: 20091009
  Serious: Yes (Other)
  Sender: FDA-Public Use
  Company Number: PHEH2009US05485

PATIENT
  Sex: Male

DRUGS (9)
  1. RECLAST [Suspect]
     Dosage: 5 MG, UNK
     Dates: start: 20081020
  2. NORDETTE-21 [Concomitant]
  3. ASPIRIN [Concomitant]
  4. CALCIUM WITH VITAMIN D [Concomitant]
  5. MULTI-VITAMINS [Concomitant]
  6. ALDACTONE [Concomitant]
  7. ZOCOR [Concomitant]
  8. TOPROL-XL [Concomitant]
  9. AMBIEN [Concomitant]

REACTIONS (3)
  - DIZZINESS [None]
  - HYPOTENSION [None]
  - VISION BLURRED [None]
